FAERS Safety Report 10059500 (Version 4)
Quarter: 2014Q4

REPORT INFORMATION
  Report Type: Report from Study
  Country: BR (occurrence: BR)
  Receive Date: 20140404
  Receipt Date: 20141001
  Transmission Date: 20150528
  Serious: Yes (Hospitalization, Other)
  Sender: FDA-Public Use
  Company Number: PHHY2014BR037894

PATIENT
  Age: 67 Year
  Sex: Female
  Weight: 66 kg

DRUGS (12)
  1. AFINITOR [Concomitant]
     Active Substance: EVEROLIMUS
     Indication: NEOPLASM MALIGNANT
     Dosage: 1 DF, ONCE A DAY
     Route: 048
     Dates: start: 201112, end: 201201
  2. SANDOSTATIN LAR DEPOT [Suspect]
     Active Substance: OCTREOTIDE ACETATE
     Dosage: UNK UKN, UNK
  3. ATENOLOL. [Concomitant]
     Active Substance: ATENOLOL
     Indication: HYPERTENSION
     Dosage: 1 DF, TWICE A DAY
     Route: 048
  4. SUTENT [Concomitant]
     Active Substance: SUNITINIB MALATE
     Indication: NEOPLASM MALIGNANT
     Dosage: 3 DF, ONCE A DAY
     Route: 048
     Dates: start: 201302
  5. OMEPRAZOLE. [Concomitant]
     Active Substance: OMEPRAZOLE
     Indication: GASTRIC DISORDER
     Dosage: 1 DF, ONCE A DAY
     Route: 048
  6. LEXAPRO [Concomitant]
     Active Substance: ESCITALOPRAM OXALATE
     Indication: DEPRESSION
     Dosage: 1 DF, DAILY
     Route: 048
     Dates: start: 201101
  7. NAUSEDRON [Concomitant]
     Active Substance: ONDANSETRON HYDROCHLORIDE
     Indication: NAUSEA
     Dosage: 1 DF, TWICE A DAY
     Route: 048
     Dates: start: 201104
  8. VITAMIN B COMPLEX NOS [Concomitant]
     Active Substance: CYANOCOBALAMIN\PYRIDOXINE HYDROCHLORIDE\RIBOFLAVIN\SODIUM PANTOTHENATE\THIAMINE HYDROCHLORIDE\VITAMIN B COMPLEX
     Dosage: 1 DF, ONCE A DAY
     Route: 048
  9. SANDOSTATIN LAR DEPOT [Suspect]
     Active Substance: OCTREOTIDE ACETATE
     Indication: NEUROENDOCRINE CARCINOMA
     Dosage: 1 INJECTION, EACH 28 DAYS
     Route: 065
     Dates: start: 201012
  10. SUTENT [Concomitant]
     Active Substance: SUNITINIB MALATE
     Indication: LUNG NEOPLASM MALIGNANT
  11. INSULIN [Concomitant]
     Active Substance: INSULIN NOS
     Indication: DIABETES MELLITUS
     Dosage: 25 IU, DAILY
     Dates: start: 201202, end: 201302
  12. SUTENT [Concomitant]
     Active Substance: SUNITINIB MALATE
     Indication: METASTASES TO LIVER

REACTIONS (14)
  - Anaemia [Recovering/Resolving]
  - Renal failure [Recovering/Resolving]
  - Infection [Recovered/Resolved]
  - Renal disorder [Recovering/Resolving]
  - Nausea [Unknown]
  - Pneumonia [Recovered/Resolved]
  - Pyrexia [Unknown]
  - Abdominal pain [Unknown]
  - Malaise [Unknown]
  - Hypertension [Recovering/Resolving]
  - Fatigue [Recovering/Resolving]
  - Swelling [Unknown]
  - Fluid retention [Recovering/Resolving]
  - Hyperthyroidism [Not Recovered/Not Resolved]

NARRATIVE: CASE EVENT DATE: 201306
